FAERS Safety Report 6407758-0 (Version None)
Quarter: 2009Q4

REPORT INFORMATION
  Report Type: 
  Country: None (occurrence: None)
  Receive Date: 20091020
  Receipt Date: 20091006
  Transmission Date: 20100525
  Serious: Yes (Other)
  Sender: FDA-Public Use
  Company Number: DE-MYLANLABS-2009S1017559

PATIENT
  Age: 46 Year
  Sex: Female
  Weight: 55 kg

DRUGS (4)
  1. IBUPROFEN [Suspect]
     Indication: INTENTIONAL OVERDOSE
     Route: 048
     Dates: start: 20091006, end: 20091006
  2. NITRAZEPAM [Suspect]
     Indication: INTENTIONAL OVERDOSE
     Route: 048
     Dates: start: 20091006, end: 20091006
  3. NORMOC [Suspect]
     Indication: INTENTIONAL OVERDOSE
     Route: 048
     Dates: start: 20091006, end: 20091006
  4. VENLAFAXINE HCL [Suspect]
     Indication: INTENTIONAL OVERDOSE
     Route: 048
     Dates: start: 20091006, end: 20091006

REACTIONS (2)
  - INTENTIONAL OVERDOSE [None]
  - SUICIDE ATTEMPT [None]
